FAERS Safety Report 25537590 (Version 2)
Quarter: 2025Q3

REPORT INFORMATION
  Report Type: Spontaneous
  Country: EU (occurrence: EU)
  Receive Date: 20250710
  Receipt Date: 20250722
  Transmission Date: 20251020
  Serious: Yes (Other)
  Sender: AUROBINDO
  Company Number: EU-002147023-NVSC2025DE099555

PATIENT
  Age: 55 Year
  Sex: Female
  Weight: 50 kg

DRUGS (4)
  1. ROSUVASTATIN [Suspect]
     Active Substance: ROSUVASTATIN
     Indication: Blood cholesterol increased
     Route: 065
  2. TASIGNA [Suspect]
     Active Substance: NILOTINIB
     Indication: Chronic myeloid leukaemia
     Dosage: 600 MILLIGRAM, ONCE A DAY (150 MG, QID (2-0-2)
     Route: 065
     Dates: start: 2020
  3. TASIGNA [Suspect]
     Active Substance: NILOTINIB
     Dosage: 800 MILLIGRAM, ONCE A DAY (200 MG, QID (2-0-2)
     Route: 065
     Dates: start: 2020
  4. TASIGNA [Suspect]
     Active Substance: NILOTINIB
     Dosage: 600 MILLIGRAM, ONCE A DAY (150 MG, QID (2-0-2)
     Route: 065

REACTIONS (9)
  - Corneal epithelium defect [Unknown]
  - Mucosal disorder [Unknown]
  - Lipids increased [Unknown]
  - Hepatic enzyme increased [Unknown]
  - Diarrhoea [Unknown]
  - Corneal disorder [Unknown]
  - Blood cholesterol increased [Unknown]
  - Inappropriate schedule of product administration [Unknown]
  - Expired product administered [Unknown]
